FAERS Safety Report 13695430 (Version 1)
Quarter: 2017Q2

REPORT INFORMATION
  Report Type: Spontaneous
  Country: US (occurrence: US)
  Receive Date: 20170627
  Receipt Date: 20170627
  Transmission Date: 20170830
  Serious: Yes (Other)
  Sender: FDA-Public Use
  Company Number: US-BRISTOL-MYERS SQUIBB COMPANY-BMS-2017-054490

PATIENT
  Age: 86 Year
  Sex: Female

DRUGS (2)
  1. ELIQUIS [Suspect]
     Active Substance: APIXABAN
     Indication: PRODUCT USED FOR UNKNOWN INDICATION
     Dosage: 10 MG, BID
     Route: 048
     Dates: start: 20170517
  2. ELIQUIS [Suspect]
     Active Substance: APIXABAN
     Indication: PRODUCT USED FOR UNKNOWN INDICATION
     Dosage: 5 MG, BID
     Route: 048

REACTIONS (9)
  - Alopecia [Unknown]
  - Laceration [Unknown]
  - Haemorrhage [Unknown]
  - Nail disorder [Unknown]
  - Thrombosis [Unknown]
  - Bursitis [Unknown]
  - Arthralgia [Unknown]
  - Scratch [Unknown]
  - Cyst [Unknown]

NARRATIVE: CASE EVENT DATE: 20170519
